FAERS Safety Report 9520933 (Version 1)
Quarter: 2013Q1

REPORT INFORMATION
  Report Type: Spontaneous
  Country: US (occurrence: None)
  Receive Date: 20130305
  Receipt Date: 20130305
  Transmission Date: 20140127
  Serious: Yes (Other)
  Sender: FDA-Public Use
  Company Number: 163-21880-11083496

PATIENT
  Age: 63 Year
  Sex: Female
  Weight: 49.44 kg

DRUGS (5)
  1. REVLIMID [Suspect]
     Indication: PLASMA CELL MYELOMA
     Dosage: 25 MG, 21 IN 21 D, PO
     Route: 048
     Dates: start: 201107, end: 20110817
  2. ATENOLOL (ATENOLOL) (UNKNOWN) [Concomitant]
  3. PRAVASTATIN (PRAVASTATIN) (UNKNOWN)? [Concomitant]
  4. COZAR (LOSARTAN POTASSIUM) (UNKNOWN) [Concomitant]
  5. COUMADIN (WARFARIN SODIUM) (UNKNOWN) [Concomitant]

REACTIONS (8)
  - Tremor [None]
  - Headache [None]
  - Pulmonary congestion [None]
  - Rash generalised [None]
  - Pyrexia [None]
  - Chills [None]
  - Tremor [None]
  - Dyspnoea [None]
